FAERS Safety Report 5932228-3 (Version None)
Quarter: 2008Q4

REPORT INFORMATION
  Report Type: 
  Country: None (occurrence: None)
  Receive Date: 20081021
  Receipt Date: 20081006
  Transmission Date: 20090506
  Serious: Yes (Congenital Anomaly, Other)
  Sender: FDA-Public Use
  Company Number: 2008100022

PATIENT

DRUGS (4)
  1. MEPROBAMATE [Suspect]
     Dosage: (2000 MG) ,TRANSPLACENTAL
     Route: 064
  2. DIAZEPAM [Suspect]
     Dosage: (50 MG) ,TRANSPLACENTAL
     Route: 064
  3. CHLORODIAZEPOXIDE [Concomitant]
     Dosage: (275 MG) ,TRANSPLACENTAL
     Route: 064
  4. NITRAZEPAM [Suspect]
     Dosage: (280 MG) ,TRANSPLACENTAL
     Route: 064

REACTIONS (13)
  - ANKYLOGLOSSIA CONGENITAL [None]
  - CONGENITAL ANOMALY [None]
  - CONGENITAL NOSE MALFORMATION [None]
  - DRUG EXPOSURE DURING PREGNANCY [None]
  - HIGH ARCHED PALATE [None]
  - INCORRECT DOSE ADMINISTERED [None]
  - INTELLIGENCE TEST ABNORMAL [None]
  - MATERNAL ALCOHOL USE [None]
  - MATERNAL DRUGS AFFECTING FOETUS [None]
  - MUSCLE DISORDER [None]
  - POISONING DELIBERATE [None]
  - SUICIDE ATTEMPT [None]
  - TALIPES [None]
